FAERS Safety Report 17954974 (Version 1)
Quarter: 2020Q2

REPORT INFORMATION
  Report Type: Report from Study
  Country: CA (occurrence: CA)
  Receive Date: 20200629
  Receipt Date: 20200629
  Transmission Date: 20200714
  Serious: Yes (Other)
  Sender: FDA-Public Use
  Company Number: CA-ASTRAZENECA-2020SE81938

PATIENT
  Age: 4113 Week
  Sex: Male

DRUGS (16)
  1. MONTELUKAST [Concomitant]
     Active Substance: MONTELUKAST SODIUM
  2. PULMICORT TURBUHALER [Concomitant]
     Active Substance: BUDESONIDE
  3. SPIRIVA [Concomitant]
     Active Substance: TIOTROPIUM BROMIDE MONOHYDRATE
  4. PERINDOPRIL [Concomitant]
     Active Substance: PERINDOPRIL
  5. RABEPRAZOLE [Concomitant]
     Active Substance: RABEPRAZOLE
  6. PREDNISONE. [Concomitant]
     Active Substance: PREDNISONE
  7. AMLODIPINE [Concomitant]
     Active Substance: AMLODIPINE BESYLATE
  8. TAMSULOSIN CR [Concomitant]
     Active Substance: TAMSULOSIN
  9. AMOXICLAVIN [Concomitant]
  10. FASENRA [Suspect]
     Active Substance: BENRALIZUMAB
     Indication: ASTHMA
     Dosage: 30.0MG UNKNOWN
     Route: 058
     Dates: start: 20200428
  11. ATROVENT [Concomitant]
     Active Substance: IPRATROPIUM BROMIDE
  12. SYMBICORT [Concomitant]
     Active Substance: BUDESONIDE\FORMOTEROL FUMARATE DIHYDRATE
  13. ATORVASTATIN [Concomitant]
     Active Substance: ATORVASTATIN
  14. MOXIFLOXACIN. [Concomitant]
     Active Substance: MOXIFLOXACIN
  15. XARELTO [Concomitant]
     Active Substance: RIVAROXABAN
  16. AZITHROMYCIN ANHYDROUS. [Concomitant]
     Active Substance: AZITHROMYCIN ANHYDROUS

REACTIONS (4)
  - Dyspnoea [Recovered/Resolved]
  - Drug ineffective [Unknown]
  - Asthenia [Recovered/Resolved]
  - Fatigue [Recovered/Resolved]

NARRATIVE: CASE EVENT DATE: 20200604
